FAERS Safety Report 10617716 (Version 1)
Quarter: 2014Q4

REPORT INFORMATION
  Report Type: Spontaneous
  Country: US (occurrence: US)
  Receive Date: 20141201
  Receipt Date: 20141201
  Transmission Date: 20150529
  Serious: No
  Sender: FDA-Public Use
  Company Number: US-009507513-1412USA000331

PATIENT
  Sex: Female

DRUGS (4)
  1. PEGASYS [Suspect]
     Active Substance: PEGINTERFERON ALFA-2A
     Indication: CHRONIC HEPATITIS C
     Dosage: 180 MICROGRAM, QW
     Route: 065
     Dates: start: 20120401, end: 20120413
  2. COPEGUS [Suspect]
     Active Substance: RIBAVIRIN
     Indication: CHRONIC HEPATITIS C
     Dosage: 1200 MG, QD
     Route: 065
     Dates: start: 20120401, end: 20120413
  3. TELAPREVIR [Concomitant]
     Active Substance: TELAPREVIR
  4. VICTRELIS [Suspect]
     Active Substance: BOCEPREVIR
     Indication: HEPATITIS C
     Route: 048

REACTIONS (14)
  - Dysuria [Unknown]
  - Rash [Unknown]
  - Feeling abnormal [Unknown]
  - Urticaria [Unknown]
  - Fatigue [Unknown]
  - Cheilitis [Unknown]
  - Dehydration [Unknown]
  - Constipation [Unknown]
  - Proctalgia [Unknown]
  - Vomiting [Unknown]
  - Candida infection [Unknown]
  - Stomatitis [Unknown]
  - Streptococcal infection [Unknown]
  - Painful defaecation [Unknown]
